FAERS Safety Report 17900041 (Version 1)
Quarter: 2020Q2

REPORT INFORMATION
  Report Type: Spontaneous
  Country: US (occurrence: US)
  Receive Date: 20200615
  Receipt Date: 20200615
  Transmission Date: 20200714
  Serious: Yes (Disabling)
  Sender: FDA-Public Use
  Company Number: None

PATIENT
  Age: 84 Year
  Sex: Female
  Weight: 49.5 kg

DRUGS (20)
  1. PANTOPRAZOLE (40MG) [Suspect]
     Active Substance: PANTOPRAZOLE SODIUM
     Indication: HYPERCHLORHYDRIA
     Dosage: ?          QUANTITY:30 TABLET(S);?
     Route: 048
     Dates: start: 20200523, end: 20200527
  2. AFLIBERCEPT [Concomitant]
     Active Substance: AFLIBERCEPT
  3. IPRATROPIUM BROMIDE. [Concomitant]
     Active Substance: IPRATROPIUM BROMIDE
  4. BETHMETHASONE [Concomitant]
  5. LOW DOSE ASPIRIN [Concomitant]
     Active Substance: ASPIRIN
  6. DGL [Concomitant]
  7. MUCUS RELIEF DM [Concomitant]
     Active Substance: DEXTROMETHORPHAN HYDROBROMIDE\GUAIFENESIN
  8. CALCIUM [Concomitant]
     Active Substance: CALCIUM
  9. PREMARIN [Concomitant]
     Active Substance: ESTROGENS, CONJUGATED
  10. FOCUS SELECT PREMIUM MACULAR HEALTH FORMULA [Concomitant]
  11. B-COMPLEX MULTIVITAMIN [Concomitant]
  12. MAGNESIUM [Concomitant]
     Active Substance: MAGNESIUM
  13. FISH OIL [Concomitant]
     Active Substance: FISH OIL
  14. ANTI-DIARRHEAL [Concomitant]
     Active Substance: LOPERAMIDE HYDROCHLORIDE
  15. VITAMIN D3 [Concomitant]
     Active Substance: CHOLECALCIFEROL
  16. LACTASE ENZYME [Concomitant]
  17. HCL [Concomitant]
  18. FLUTICASONE. [Concomitant]
     Active Substance: FLUTICASONE
  19. OMEGA Q+ RESVERATOL [Concomitant]
  20. BEANO [Concomitant]
     Active Substance: ASPERGILLUS NIGER .ALPHA.-GALACTOSIDASE

REACTIONS (6)
  - Hallucination, visual [None]
  - Nausea [None]
  - Headache [None]
  - Photophobia [None]
  - Chills [None]
  - Pyrexia [None]

NARRATIVE: CASE EVENT DATE: 20200525
